FAERS Safety Report 24645633 (Version 2)
Quarter: 2024Q4

REPORT INFORMATION
  Report Type: Spontaneous
  Country: DE (occurrence: DE)
  Receive Date: 20241121
  Receipt Date: 20241205
  Transmission Date: 20250115
  Serious: Yes (Hospitalization)
  Sender: TEVA
  Company Number: DE-TEVA-VS-3264172

PATIENT
  Sex: Female

DRUGS (31)
  1. LEVETIRACETAM [Suspect]
     Active Substance: LEVETIRACETAM
     Indication: Seizure
     Route: 065
     Dates: start: 2010, end: 2020
  2. ESKETAMINE [Suspect]
     Active Substance: ESKETAMINE
     Indication: Status epilepticus
     Route: 065
     Dates: start: 2022
  3. ISOFLURANE [Suspect]
     Active Substance: ISOFLURANE
     Indication: Status epilepticus
     Route: 065
     Dates: start: 2022
  4. PHENOBARBITAL [Suspect]
     Active Substance: PHENOBARBITAL
     Indication: Status epilepticus
     Route: 065
     Dates: start: 2022
  5. MIDAZOLAM [Suspect]
     Active Substance: MIDAZOLAM
     Indication: Seizure
     Route: 065
     Dates: start: 2022
  6. TOPIRAMATE [Suspect]
     Active Substance: TOPIRAMATE
     Indication: Seizure
     Route: 065
     Dates: start: 2000
  7. TOPIRAMATE [Suspect]
     Active Substance: TOPIRAMATE
     Indication: Seizure
     Route: 065
     Dates: start: 2022
  8. VIGABATRIN [Suspect]
     Active Substance: VIGABATRIN
     Indication: Seizure
     Route: 065
     Dates: start: 1998
  9. PROPOFOL [Suspect]
     Active Substance: PROPOFOL
     Indication: Seizure
     Route: 065
     Dates: start: 20221103, end: 20221109
  10. VALPROIC ACID [Suspect]
     Active Substance: VALPROIC ACID
     Indication: Seizure
     Route: 065
     Dates: start: 2022
  11. VALPROIC ACID [Suspect]
     Active Substance: VALPROIC ACID
     Indication: Seizure
     Route: 065
     Dates: start: 2010
  12. ZONISAMIDE [Suspect]
     Active Substance: ZONISAMIDE
     Indication: Seizure
     Dosage: RECEIVED BEFORE 2003
     Route: 065
  13. BRIVARACETAM [Suspect]
     Active Substance: BRIVARACETAM
     Indication: Seizure
     Route: 065
     Dates: start: 2020, end: 2022
  14. SULTHIAME [Suspect]
     Active Substance: SULTHIAME
     Indication: Seizure
     Route: 065
     Dates: start: 2000
  15. CANNABIDIOL [Suspect]
     Active Substance: CANNABIDIOL
     Indication: Seizure
     Route: 065
     Dates: start: 2020
  16. FENFLURAMINE [Suspect]
     Active Substance: FENFLURAMINE
     Indication: Status epilepticus
     Dosage: RECEIVED VIA?NASOGASTRAL TUBE
     Route: 065
  17. PERAMPANEL [Suspect]
     Active Substance: PERAMPANEL
     Indication: Seizure
     Route: 065
     Dates: start: 2022
  18. RUFINAMIDE [Suspect]
     Active Substance: RUFINAMIDE
     Indication: Seizure
     Route: 065
     Dates: start: 2015
  19. PRIMIDONE [Suspect]
     Active Substance: PRIMIDONE
     Indication: Seizure
     Dosage: RECEIVED BEFORE 2003
     Route: 065
  20. PHENYTOIN [Suspect]
     Active Substance: PHENYTOIN
     Indication: Seizure
     Dosage: RECEIVED 750MG OVER 12?H
     Route: 042
     Dates: start: 2022, end: 2022
  21. PHENYTOIN [Suspect]
     Active Substance: PHENYTOIN
     Indication: Seizure
     Route: 065
     Dates: start: 2008, end: 2020
  22. PHENYTOIN [Suspect]
     Active Substance: PHENYTOIN
     Indication: Seizure
     Dosage: RECEIVED LOADING DOSE OF 1.5G OVER 30?MIN
     Route: 042
     Dates: start: 2022, end: 2022
  23. LACOSAMIDE [Suspect]
     Active Substance: LACOSAMIDE
     Indication: Seizure
     Route: 065
     Dates: start: 2016
  24. LACOSAMIDE [Suspect]
     Active Substance: LACOSAMIDE
     Indication: Seizure
     Route: 065
     Dates: start: 2010
  25. LACOSAMIDE [Suspect]
     Active Substance: LACOSAMIDE
     Indication: Seizure
     Route: 065
     Dates: start: 2020
  26. DIAZEPAM [Suspect]
     Active Substance: DIAZEPAM
     Indication: Status epilepticus
     Route: 065
     Dates: start: 2022
  27. PREGABALIN [Suspect]
     Active Substance: PREGABALIN
     Indication: Seizure
     Dosage: RECEIVED BEFORE 2003
     Route: 065
  28. EVEROLIMUS [Suspect]
     Active Substance: EVEROLIMUS
     Indication: Seizure
     Route: 065
     Dates: start: 2020
  29. EVEROLIMUS [Suspect]
     Active Substance: EVEROLIMUS
     Indication: Seizure
     Route: 065
  30. CLOBAZAM [Suspect]
     Active Substance: CLOBAZAM
     Indication: Seizure
     Route: 065
     Dates: start: 2014
  31. METHSUXIMIDE [Suspect]
     Active Substance: METHSUXIMIDE
     Indication: Seizure
     Dosage: RECEIVED BEFORE 2003
     Route: 065

REACTIONS (4)
  - Drug ineffective [Unknown]
  - Rebound effect [Unknown]
  - Off label use [Unknown]
  - Pyrexia [Unknown]

NARRATIVE: CASE EVENT DATE: 20221101
